FAERS Safety Report 14898476 (Version 1)
Quarter: 2018Q2

REPORT INFORMATION
  Report Type: Spontaneous
  Country: US (occurrence: US)
  Receive Date: 20180515
  Receipt Date: 20180515
  Transmission Date: 20180711
  Serious: Yes (Other)
  Sender: FDA-Public Use
  Company Number: US-MYLANLABS-2018M1031632

PATIENT
  Age: 88 Year
  Sex: Female

DRUGS (2)
  1. CARBIDOPA/LEVODOPA [Suspect]
     Active Substance: CARBIDOPA\LEVODOPA
     Indication: PRODUCT USED FOR UNKNOWN INDICATION
     Dosage: 50/500 MG THROUGH HER FEEDING TUBE
     Route: 050
  2. CARBIDOPA/LEVODOPA [Suspect]
     Active Substance: CARBIDOPA\LEVODOPA
     Dosage: 25/250MG
     Route: 050

REACTIONS (5)
  - Atrial fibrillation [Unknown]
  - Cardiac failure [Not Recovered/Not Resolved]
  - Delirium [Unknown]
  - Dyskinesia [Unknown]
  - Agitation [Unknown]
